FAERS Safety Report 10455445 (Version 1)
Quarter: 2014Q3

REPORT INFORMATION
  Report Type: Spontaneous
  Country: US (occurrence: None)
  Receive Date: 20140915
  Receipt Date: 20140915
  Transmission Date: 20150326
  Serious: Yes (Death, Hospitalization)
  Sender: FDA-Public Use
  Company Number: None

PATIENT
  Age: 58 Year
  Sex: Male
  Weight: 85.4 kg

DRUGS (2)
  1. CYTARABINE. [Suspect]
     Active Substance: CYTARABINE
     Dates: start: 20140819
  2. IDARUBICIN [Suspect]
     Active Substance: IDARUBICIN
     Dates: start: 20140819

REACTIONS (3)
  - Sepsis [None]
  - Multi-organ failure [None]
  - Neutropenic colitis [None]

NARRATIVE: CASE EVENT DATE: 20140903
